FAERS Safety Report 23581913 (Version 1)
Quarter: 2024Q1

REPORT INFORMATION
  Report Type: Other
  Country: NO (occurrence: NO)
  Receive Date: 20240229
  Receipt Date: 20240229
  Transmission Date: 20240409
  Serious: Yes (Hospitalization)
  Sender: FDA-Public Use
  Company Number: None

PATIENT
  Age: 42 Year
  Sex: Female

DRUGS (2)
  1. OMNIPAQUE [Suspect]
     Active Substance: IOHEXOL
     Indication: Computerised tomogram
     Dosage: 130 ML, TOTAL
     Route: 042
     Dates: start: 20240208, end: 20240208
  2. NITROLINGUAL [Suspect]
     Active Substance: NITROGLYCERIN
     Dosage: UNKNOWN DOSE ADMINISTERED
     Dates: start: 20240208, end: 20240208

REACTIONS (5)
  - Deafness [Unknown]
  - Blood pressure decreased [Unknown]
  - Headache [Unknown]
  - Vomiting [Unknown]
  - Nausea [Unknown]

NARRATIVE: CASE EVENT DATE: 20240208
